FAERS Safety Report 4269582-7 (Version None)
Quarter: 2004Q1

REPORT INFORMATION
  Report Type: 
  Country: None (occurrence: None)
  Receive Date: 20040112
  Receipt Date: 20031230
  Transmission Date: 20041129
  Serious: Yes (Death, Life-Threatening, Hospitalization, Other)
  Sender: FDA-Public Use
  Company Number: DE-SHR-03-018120

PATIENT
  Age: 79 Year
  Sex: Female
  Weight: 65 kg

DRUGS (16)
  1. FLUDARA [Suspect]
     Indication: NON-HODGKIN'S LYMPHOMA
     Dosage: 30 MG, 1X/DAY, INTRAVENOUS; 45 MG, 1X/DAY, INTRAVENOUS
     Route: 042
     Dates: start: 20030912, end: 20030914
  2. FLUDARA [Suspect]
     Indication: NON-HODGKIN'S LYMPHOMA
     Dosage: 30 MG, 1X/DAY, INTRAVENOUS; 45 MG, 1X/DAY, INTRAVENOUS
     Route: 042
     Dates: start: 20031024, end: 20031026
  3. CYCLOPHOSPHAMIDE [Suspect]
     Indication: NON-HODGKIN'S LYMPHOMA
     Dosage: SEE IMAGE
     Route: 042
     Dates: start: 20030828, end: 20030901
  4. CYCLOPHOSPHAMIDE [Suspect]
     Indication: NON-HODGKIN'S LYMPHOMA
     Dosage: SEE IMAGE
     Route: 042
     Dates: start: 20030912, end: 20030912
  5. CYCLOPHOSPHAMIDE [Suspect]
     Indication: NON-HODGKIN'S LYMPHOMA
     Dosage: SEE IMAGE
     Route: 042
     Dates: start: 20031024, end: 20031024
  6. MITOXANTRONE [Suspect]
     Indication: NON-HODGKIN'S LYMPHOMA
     Dosage: SEE IMAGE
     Route: 042
     Dates: start: 20030912, end: 20030912
  7. MITOXANTRONE [Suspect]
     Indication: NON-HODGKIN'S LYMPHOMA
     Dosage: SEE IMAGE
     Route: 042
     Dates: start: 20031024, end: 20031024
  8. UROMITEXAN (MESNA) [Concomitant]
  9. PREDNISONE [Concomitant]
  10. NAVOBAN/SCH/(TROPISETRON HYDROCHLORIDE) [Concomitant]
  11. COTRIM [Concomitant]
  12. MST-30-SLOW RELEASE (MORPHINE SULFATE) [Concomitant]
  13. TOREM/SFR/(TORASEMIDE) [Concomitant]
  14. LEVOTHYROXINE SODIUM(LEVOTHYROXNIE SODIUM) [Concomitant]
  15. MACROGOL (MACROGOL) [Concomitant]
  16. BIFITERAL ^SOLVAY ARZNEIMITTEL^ (LACTULOSE) CAPSULE [Concomitant]

REACTIONS (13)
  - BONE MARROW DEPRESSION [None]
  - CONFUSIONAL STATE [None]
  - DISORIENTATION [None]
  - ESCHERICHIA SEPSIS [None]
  - FALL [None]
  - INFECTION [None]
  - LEUKOPENIA [None]
  - LOBAR PNEUMONIA [None]
  - NERVOUS SYSTEM DISORDER [None]
  - NYSTAGMUS [None]
  - SOMNOLENCE [None]
  - THROMBOCYTOPENIA [None]
  - WOUND [None]
